FAERS Safety Report 16540300 (Version 1)
Quarter: 2019Q3

REPORT INFORMATION
  Report Type: Spontaneous
  Country: US (occurrence: US)
  Receive Date: 20190708
  Receipt Date: 20190708
  Transmission Date: 20191004
  Serious: No
  Sender: FDA-Public Use
  Company Number: US-BEH-2019103269

PATIENT
  Age: 22 Year
  Sex: Female

DRUGS (22)
  1. LEXAPRO [Concomitant]
     Active Substance: ESCITALOPRAM OXALATE
     Dosage: 20 MILLIGRAM
     Route: 065
     Dates: start: 20190618
  2. L-METHYLFOLATE [Concomitant]
     Active Substance: LEVOMEFOLIC ACID
     Dosage: 15 MILLIGRAM
     Route: 065
     Dates: start: 20181022
  3. VITAMIN C [Concomitant]
     Active Substance: ASCORBIC ACID
     Dosage: 500 MILLIGRAM
     Route: 065
     Dates: start: 20190102
  4. DILANTIN SODIUM [Concomitant]
     Active Substance: PHENYTOIN SODIUM
     Dosage: 100 MILLIGRAM
     Route: 065
     Dates: start: 20190102
  5. PHENOBARB [PHENOBARBITAL] [Concomitant]
     Dosage: 15 MILLIGRAM
     Route: 065
     Dates: start: 20190102
  6. PREVACID [Concomitant]
     Active Substance: LANSOPRAZOLE
     Dosage: 30 MILLIGRAM
     Route: 065
     Dates: start: 20190102
  7. PROVIGIL [CHORIONIC GONADOTROPHIN] [Concomitant]
     Active Substance: GONADOTROPHIN, CHORIONIC
     Dosage: 200 MILLIGRAM
     Route: 065
     Dates: start: 20190102
  8. VITAMIN B6 [Concomitant]
     Active Substance: PYRIDOXINE HYDROCHLORIDE
     Dosage: 100 MILLIGRAM
     Route: 065
     Dates: start: 20190102
  9. HIZENTRA [Suspect]
     Active Substance: HUMAN IMMUNOGLOBULIN G
     Indication: HUMORAL IMMUNE DEFECT
     Dosage: 12 GRAM, QW
     Route: 058
     Dates: start: 20171013
  10. COQ10 [UBIDECARENONE] [Concomitant]
     Active Substance: UBIDECARENONE
     Dosage: 100 MILLIGRAM
     Route: 065
     Dates: start: 20190102
  11. MELATONIN [Concomitant]
     Active Substance: MELATONIN
     Dosage: 5 MILLIGRAM
     Route: 065
     Dates: start: 20190102
  12. MIRALAX [Concomitant]
     Active Substance: POLYETHYLENE GLYCOL 3350
     Dosage: UNK
     Route: 065
     Dates: start: 20190102
  13. ONFI [Concomitant]
     Active Substance: CLOBAZAM
     Dosage: 20 MILLIGRAM
     Route: 065
     Dates: start: 20190102
  14. VITAMIN D3 [Concomitant]
     Active Substance: CHOLECALCIFEROL
     Dosage: 2000 INTERNATIONAL UNIT
     Route: 065
     Dates: start: 20190102
  15. FOLIC ACID. [Concomitant]
     Active Substance: FOLIC ACID
     Dosage: 400 MICROGRAM
     Route: 065
     Dates: start: 20190102
  16. SENNA [SENNA ALEXANDRINA] [Concomitant]
     Active Substance: SENNA LEAF
     Dosage: 8.6 MILLIGRAM
     Route: 065
     Dates: start: 20190102
  17. VITAMIN B12 [VITAMIN B12 NOS] [Concomitant]
     Active Substance: CYANOCOBALAMIN
     Dosage: 1000 MICROGRAM
     Route: 065
     Dates: start: 20190102
  18. EPIDIOLEX [Concomitant]
     Active Substance: CANNABIDIOL
     Route: 065
  19. VITAMIN E [Concomitant]
     Active Substance: .ALPHA.-TOCOPHEROL
     Dosage: 400 INTERNATIONAL UNIT
     Route: 065
     Dates: start: 20190102
  20. ACETAZOLAMID [Concomitant]
     Active Substance: ACETAZOLAMIDE
     Dosage: 250 MILLIGRAM
     Route: 065
     Dates: start: 20190102
  21. CARBIDOPA/LEVODOPA [Concomitant]
     Active Substance: CARBIDOPA\LEVODOPA
     Dosage: 25100 MILLIGRAM
     Route: 065
     Dates: start: 20190102
  22. KUVAN [Concomitant]
     Active Substance: SAPROPTERIN DIHYDROCHLORIDE
     Dosage: 500 MILLIGRAM
     Route: 065
     Dates: start: 20190102

REACTIONS (1)
  - Muscle twitching [Not Recovered/Not Resolved]
